FAERS Safety Report 8394997-5 (Version None)
Quarter: 2012Q2

REPORT INFORMATION
  Report Type: 
  Country: None (occurrence: None)
  Receive Date: 20120530
  Receipt Date: 20120518
  Transmission Date: 20120825
  Serious: Yes (Other)
  Sender: FDA-Public Use
  Company Number: US-ELI_LILLY_AND_COMPANY-US201205007069

PATIENT
  Age: 43 Year
  Sex: Female

DRUGS (10)
  1. CYMBALTA [Suspect]
     Indication: BIPOLAR I DISORDER
     Dosage: 120 MG, QD
     Dates: start: 20070101, end: 20120501
  2. CYMBALTA [Suspect]
     Dosage: 60 MG, QD
     Dates: start: 20120501
  3. ZOLOFT [Concomitant]
  4. IMITREX [Concomitant]
  5. ZOFRAN [Concomitant]
  6. LUNESTA [Concomitant]
  7. NEURONTIN [Concomitant]
  8. PRILOSEC [Concomitant]
  9. FLEXERIL [Concomitant]
  10. VITAMIN D [Concomitant]

REACTIONS (9)
  - PARALYSIS [None]
  - MUSCULOSKELETAL STIFFNESS [None]
  - MYALGIA [None]
  - ARTHRALGIA [None]
  - NODULE [None]
  - MUSCLE TIGHTNESS [None]
  - VISION BLURRED [None]
  - CONTUSION [None]
  - VITAMIN D DEFICIENCY [None]
